FAERS Safety Report 11130348 (Version 2)
Quarter: 2015Q2

REPORT INFORMATION
  Report Type: Report from Study
  Country: CN (occurrence: CN)
  Receive Date: 20150522
  Receipt Date: 20150529
  Transmission Date: 20150821
  Serious: Yes (Other)
  Sender: FDA-Public Use
  Company Number: CN-ROCHE-1580420

PATIENT

DRUGS (6)
  1. CISPLATIN. [Suspect]
     Active Substance: CISPLATIN
     Indication: GASTRIC CANCER
     Route: 033
  2. CAPECITABINE. [Suspect]
     Active Substance: CAPECITABINE
     Indication: GASTRIC CANCER
     Route: 048
  3. CISPLATIN. [Suspect]
     Active Substance: CISPLATIN
     Indication: MALIGNANT ASCITES
  4. CAPECITABINE. [Suspect]
     Active Substance: CAPECITABINE
     Indication: MALIGNANT ASCITES
  5. LENTINAN [Suspect]
     Active Substance: LENTINAN
     Indication: GASTRIC CANCER
     Route: 033
  6. LENTINAN [Suspect]
     Active Substance: LENTINAN
     Indication: MALIGNANT ASCITES

REACTIONS (7)
  - Mucous membrane disorder [Recovering/Resolving]
  - Vomiting [Recovering/Resolving]
  - Palmar-plantar erythrodysaesthesia syndrome [Recovering/Resolving]
  - Thrombocytopenia [Recovering/Resolving]
  - Nausea [Recovering/Resolving]
  - Leukopenia [Recovering/Resolving]
  - Diarrhoea [Recovering/Resolving]
